FAERS Safety Report 12338949 (Version 3)
Quarter: 2016Q3

REPORT INFORMATION
  Report Type: Spontaneous
  Country: US (occurrence: US)
  Receive Date: 20160505
  Receipt Date: 20160729
  Transmission Date: 20161109
  Serious: Yes (Other)
  Sender: FDA-Public Use
  Company Number: US-TEVA-656613USA

PATIENT
  Age: 27 Year
  Sex: Female

DRUGS (2)
  1. ZECUITY [Suspect]
     Active Substance: SUMATRIPTAN SUCCINATE
     Route: 062
     Dates: start: 20160428, end: 20160428
  2. ZECUITY [Suspect]
     Active Substance: SUMATRIPTAN SUCCINATE
     Indication: MIGRAINE
     Route: 062
     Dates: start: 20160414, end: 20160414

REACTIONS (8)
  - Sunburn [Recovered/Resolved]
  - Application site discolouration [Recovered/Resolved]
  - Application site inflammation [Recovered/Resolved]
  - Application site bruise [Recovered/Resolved]
  - Device leakage [Unknown]
  - Device issue [Unknown]
  - Application site erythema [Recovered/Resolved]
  - Application site vesicles [Recovered/Resolved]

NARRATIVE: CASE EVENT DATE: 20160414
